FAERS Safety Report 18519389 (Version 1)
Quarter: 2020Q4

REPORT INFORMATION
  Report Type: Spontaneous
  Country: US (occurrence: US)
  Receive Date: 20201119
  Receipt Date: 20201119
  Transmission Date: 20210114
  Serious: No
  Sender: FDA-Public Use
  Company Number: NVSC2020US308841

PATIENT
  Age: 75 Year
  Sex: Male

DRUGS (2)
  1. VOLTAREN [Suspect]
     Active Substance: DICLOFENAC SODIUM
     Indication: PAIN
     Dosage: UNK UNK, QW
     Route: 065
  2. VOLTAREN [Suspect]
     Active Substance: DICLOFENAC SODIUM
     Indication: MUSCLE SPASMS

REACTIONS (3)
  - Product use in unapproved indication [Recovered/Resolved]
  - Product administered at inappropriate site [Unknown]
  - Inappropriate schedule of product administration [Unknown]
